FAERS Safety Report 19150972 (Version 1)
Quarter: 2021Q2

REPORT INFORMATION
  Report Type: Spontaneous
  Country: US (occurrence: US)
  Receive Date: 20210419
  Receipt Date: 20210419
  Transmission Date: 20210717
  Serious: No
  Sender: FDA-Public Use
  Company Number: US-MTPC-MTDA2021-0009760

PATIENT
  Age: 55 Year
  Sex: Male

DRUGS (3)
  1. RADICAVA [Suspect]
     Active Substance: EDARAVONE
     Indication: PRODUCT USED FOR UNKNOWN INDICATION
     Dosage: 60 MILLIGRAM OVER 60 MINS QD FOR 14 DAYS, FOLLOWED BY A 14?DAY DRUG?FREE PERIOD
     Route: 042
     Dates: start: 2018
  2. RADICAVA [Suspect]
     Active Substance: EDARAVONE
     Dosage: 60 MILLIGRAM OVER 60 MINS QD FOR 10 DAYS OUT OF 14 DAYS, FOLLOWED BY A 14?DAY DRUG?FREE PERIOD
     Route: 042
     Dates: end: 20210412
  3. COVID?19 VACCINE NOS. [Suspect]
     Active Substance: COVID-19 VACCINE NOS
     Indication: COVID-19 IMMUNISATION
     Dosage: UNK
     Route: 065
     Dates: start: 20210411

REACTIONS (1)
  - Malaise [Unknown]

NARRATIVE: CASE EVENT DATE: 20210412
